FAERS Safety Report 6892606-5 (Version None)
Quarter: 2010Q3

REPORT INFORMATION
  Report Type: 
  Country: None (occurrence: None)
  Receive Date: 20100731
  Receipt Date: 20080801
  Transmission Date: 20110219
  Serious: No
  Sender: FDA-Public Use
  Company Number: US-PFIZER INC-2008064674

PATIENT
  Sex: Female
  Weight: 53.98 kg

DRUGS (3)
  1. FLAGYL [Suspect]
     Indication: DIVERTICULITIS
     Dates: start: 20080121
  2. NEXIUM [Concomitant]
  3. XANAX [Concomitant]

REACTIONS (8)
  - BLOOD GLUCOSE INCREASED [None]
  - GLOSSITIS [None]
  - GLOSSODYNIA [None]
  - INFLAMMATION [None]
  - LYMPHOCYTE COUNT DECREASED [None]
  - MONOCYTE COUNT INCREASED [None]
  - TONGUE COATED [None]
  - WEIGHT DECREASED [None]
